FAERS Safety Report 10179934 (Version 2)
Quarter: 2014Q2

REPORT INFORMATION
  Report Type: Spontaneous
  Country: US (occurrence: US)
  Receive Date: 20140519
  Receipt Date: 20140519
  Transmission Date: 20141212
  Serious: No
  Sender: FDA-Public Use
  Company Number: US-BRISTOL-MYERS SQUIBB COMPANY-17362831

PATIENT
  Age: 31 Year
  Sex: Female

DRUGS (1)
  1. BARACLUDE [Suspect]
     Indication: CHRONIC HEPATITIS B
     Route: 048
     Dates: start: 2008, end: 20121004

REACTIONS (1)
  - Pregnancy [Unknown]
